FAERS Safety Report 16895091 (Version 1)
Quarter: 2019Q4

REPORT INFORMATION
  Report Type: Spontaneous
  Country: US (occurrence: US)
  Receive Date: 20191008
  Receipt Date: 20191008
  Transmission Date: 20200122
  Serious: No
  Sender: FDA-Public Use
  Company Number: US-INDIVIOR US-INDV-115072-2018

PATIENT
  Age: 37 Year
  Sex: Male

DRUGS (3)
  1. BUPRENORPHINE/NALOXONE TABLET [Suspect]
     Active Substance: BUPRENORPHINE HYDROCHLORIDE\NALOXONE HYDROCHLORIDE
     Dosage: DOWN TO HALF AND SOMETIMES QUARTER A DAY
     Route: 060
  2. SUBOXONE [Suspect]
     Active Substance: BUPRENORPHINE HYDROCHLORIDE\NALOXONE HYDROCHLORIDE
     Indication: DRUG DEPENDENCE
     Dosage: BETWEEN A HALF AND A QUARTER OF THE FILM A DAY
     Route: 060
  3. BUPRENORPHINE/NALOXONE TABLET [Suspect]
     Active Substance: BUPRENORPHINE HYDROCHLORIDE\NALOXONE HYDROCHLORIDE
     Indication: DRUG DEPENDENCE
     Dosage: UNK, TID
     Route: 060

REACTIONS (6)
  - Headache [Unknown]
  - Adverse event [Unknown]
  - Inappropriate schedule of product administration [Recovered/Resolved]
  - Drug withdrawal syndrome [Unknown]
  - Anxiety [Unknown]
  - Wrong technique in product usage process [Not Recovered/Not Resolved]
